FAERS Safety Report 7241514-9 (Version None)
Quarter: 2011Q1

REPORT INFORMATION
  Report Type: 
  Country: None (occurrence: None)
  Receive Date: 20110124
  Receipt Date: 20110114
  Transmission Date: 20110831
  Serious: Yes (Other)
  Sender: FDA-Public Use
  Company Number: BE-ASTRAZENECA-2011SE02726

PATIENT
  Age: 55 Year
  Sex: Male

DRUGS (6)
  1. SINEQUAN [Concomitant]
     Dosage: ALSO USE OF 25 MG
  2. SINEQUAN [Concomitant]
  3. INDERAL RETARD MITIS [Concomitant]
  4. AKINETON [Concomitant]
     Dosage: 1 TABLET DAILY
  5. SEROQUEL [Suspect]
     Indication: SCHIZOPHRENIA
     Route: 048
     Dates: start: 20090101
  6. TRANXENE [Concomitant]

REACTIONS (1)
  - NEUTROPENIA [None]
